FAERS Safety Report 6224507-X (Version None)
Quarter: 2009Q2

REPORT INFORMATION
  Report Type: 
  Country: None (occurrence: None)
  Receive Date: 20090612
  Receipt Date: 20090323
  Transmission Date: 20091009
  Serious: No
  Sender: FDA-Public Use
  Company Number: US-ABBOTT-09P-163-0564059-00

PATIENT
  Sex: Male

DRUGS (3)
  1. HUMIRA [Suspect]
     Indication: CROHN'S DISEASE
     Dosage: DAY 1
     Dates: start: 20090112
  2. HUMIRA [Suspect]
  3. ENTOCORT EC [Concomitant]
     Indication: DRUG USE FOR UNKNOWN INDICATION

REACTIONS (4)
  - ALOPECIA [None]
  - CONTUSION [None]
  - SKIN PAPILLOMA [None]
  - UPPER RESPIRATORY TRACT INFECTION [None]
